FAERS Safety Report 4516671-5 (Version None)
Quarter: 2004Q4

REPORT INFORMATION
  Report Type: 
  Country: None (occurrence: None)
  Receive Date: 20041130
  Receipt Date: 20041115
  Transmission Date: 20050328
  Serious: Yes (Hospitalization)
  Sender: FDA-Public Use
  Company Number: 2004-0007316

PATIENT
  Age: 52 Year
  Sex: Male
  Weight: 60 kg

DRUGS (5)
  1. VIREAD [Suspect]
     Indication: ACQUIRED IMMUNODEFICIENCY SYNDROME
     Dosage: 300 MG , 1 IN 1 D, ORAL
     Route: 048
     Dates: start: 20031105, end: 20040517
  2. KALETRA [Concomitant]
  3. LAMIVUDINE (LAMIVUDINE) [Concomitant]
  4. DAPSONE [Concomitant]
  5. LIPOSOMAL DOXORUBICIN (DOXORUBICIN) [Concomitant]

REACTIONS (12)
  - ANOREXIA [None]
  - ASTHENIA [None]
  - BLOOD PHOSPHORUS DECREASED [None]
  - BLOOD POTASSIUM DECREASED [None]
  - BLOOD URIC ACID DECREASED [None]
  - DISCOMFORT [None]
  - ELECTROLYTE IMBALANCE [None]
  - FANCONI SYNDROME ACQUIRED [None]
  - MALAISE [None]
  - METABOLIC ACIDOSIS [None]
  - MYALGIA [None]
  - RENAL TUBULAR ACIDOSIS [None]
